FAERS Safety Report 7595146-3 (Version None)
Quarter: 2011Q3

REPORT INFORMATION
  Report Type: 
  Country: None (occurrence: None)
  Receive Date: 20110707
  Receipt Date: 20110629
  Transmission Date: 20111222
  Serious: Yes (Hospitalization)
  Sender: FDA-Public Use
  Company Number: FR-B.I. PHARMACEUTICALS,INC./RIDGEFIELD-2011-FF-00563FF

PATIENT
  Sex: Female
  Weight: 65 kg

DRUGS (4)
  1. PRADAXA [Suspect]
     Indication: HIP ARTHROPLASTY
     Dosage: 220 MG
     Route: 048
     Dates: start: 20110105
  2. OMEPRAZOLE [Concomitant]
     Dosage: 3000 NR
     Dates: start: 20110104
  3. KETOPROFEN [Concomitant]
     Dosage: 200 MG
     Dates: start: 20110104, end: 20110105
  4. PRADAXA [Suspect]
     Indication: THROMBOSIS PROPHYLAXIS

REACTIONS (1)
  - DEVICE DISLOCATION [None]
